FAERS Safety Report 9643291 (Version 2)
Quarter: 2013Q4

REPORT INFORMATION
  Report Type: Spontaneous
  Country: US (occurrence: US)
  Receive Date: 20131024
  Receipt Date: 20131122
  Transmission Date: 20140711
  Serious: Yes (Other)
  Sender: FDA-Public Use
  Company Number: US-AMGEN-USASP2013073753

PATIENT
  Age: 76 Year
  Sex: Female
  Weight: 70.3 kg

DRUGS (7)
  1. PROLIA [Suspect]
     Indication: OSTEOPOROSIS POSTMENOPAUSAL
     Dosage: 60 MG, Q6MO
     Route: 058
     Dates: start: 201205
  2. SYNTHROID [Concomitant]
  3. CELEBREX [Concomitant]
  4. LOSARTAN [Concomitant]
  5. OMEPRAZOLE [Concomitant]
  6. ONE A DAY                          /02262701/ [Concomitant]
  7. CALCIUM WITH VITAMIN D             /00944201/ [Concomitant]
     Dosage: UNK UNK, TID

REACTIONS (2)
  - Breast cancer stage I [Recovered/Resolved]
  - Pain in extremity [Recovered/Resolved]
